FAERS Safety Report 22199827 (Version 2)
Quarter: 2023Q2

REPORT INFORMATION
  Report Type: Spontaneous
  Country: CA (occurrence: CA)
  Receive Date: 20230412
  Receipt Date: 20230415
  Transmission Date: 20230722
  Serious: Yes (Hospitalization)
  Sender: FDA-Public Use
  Company Number: CA-002147023-NVSC2023CA078599

PATIENT
  Sex: Male
  Weight: 3 kg

DRUGS (5)
  1. QUETIAPINE FUMARATE [Suspect]
     Active Substance: QUETIAPINE FUMARATE
     Indication: Foetal exposure during pregnancy
     Dosage: MATERNAL DOSE: 25 MG, QD, 1 EVERY 1 DAYS
     Route: 064
  2. CITALOPRAM HYDROBROMIDE [Suspect]
     Active Substance: CITALOPRAM HYDROBROMIDE
     Indication: Foetal exposure during pregnancy
     Dosage: MATERNAL DOSE: 40 MG, QD, 1 EVERY 1 DAYS
     Route: 064
  3. CANNABIS SATIVA FLOWERING TOP [Concomitant]
     Active Substance: CANNABIS SATIVA FLOWERING TOP
     Indication: Foetal exposure during pregnancy
     Dosage: UNK
     Route: 064
  4. INSULIN HUMAN [Concomitant]
     Active Substance: INSULIN HUMAN
     Indication: Foetal exposure during pregnancy
     Dosage: UNK
     Route: 064
  5. NICOTINE POLACRILEX [Concomitant]
     Active Substance: NICOTINE
     Indication: Foetal exposure during pregnancy
     Dosage: UNK
     Route: 064

REACTIONS (8)
  - Finnegan score increased [Recovered/Resolved]
  - Floppy infant [Recovered/Resolved]
  - Infant irritability [Recovered/Resolved]
  - Nausea [Recovered/Resolved]
  - Neonatal hypoxia [Recovered/Resolved]
  - Drug withdrawal syndrome neonatal [Recovered/Resolved]
  - Agitation neonatal [Recovered/Resolved]
  - Tremor [Recovered/Resolved]
